FAERS Safety Report 7727555-3 (Version None)
Quarter: 2011Q3

REPORT INFORMATION
  Report Type: 
  Country: None (occurrence: None)
  Receive Date: 20110902
  Receipt Date: 20110829
  Transmission Date: 20111222
  Serious: Yes (Hospitalization, Other)
  Sender: FDA-Public Use
  Company Number: NL-PFIZER INC-2011201289

PATIENT
  Age: 28 Year
  Sex: Male
  Weight: 61 kg

DRUGS (1)
  1. SULFASALAZINE [Suspect]
     Indication: ARTHRITIS
     Dosage: 500 MG, UNK

REACTIONS (2)
  - TOXIC SKIN ERUPTION [None]
  - HEPATIC ENZYME ABNORMAL [None]
